FAERS Safety Report 7725105-9 (Version None)
Quarter: 2011Q3

REPORT INFORMATION
  Report Type: 
  Country: None (occurrence: None)
  Receive Date: 20110901
  Receipt Date: 20110824
  Transmission Date: 20111222
  Serious: Yes (Hospitalization)
  Sender: FDA-Public Use
  Company Number: US-PFIZER INC-2011197771

PATIENT
  Age: 62 Year
  Sex: Female

DRUGS (3)
  1. PACLITAXEL [Suspect]
     Indication: ENDOMETRIAL CANCER
     Dosage: 175 MG/M2, OVER 3 HOURS ON DAY 1 X 6 CYCLES
     Route: 042
     Dates: start: 20110406
  2. TEMSIROLIMUS [Suspect]
     Indication: ENDOMETRIAL CANCER
     Dosage: 25 MG, OVER 30 MIN. ON DAYS 1 AND 8 X 6 CYCLES
     Route: 042
     Dates: start: 20110406, end: 20110629
  3. CARBOPLATIN [Suspect]
     Indication: ENDOMETRIAL CANCER
     Dosage: AUC = 5 IV OVER 30 MINUTES ON DAY 1 X 6 CYCLES
     Route: 042
     Dates: start: 20110406

REACTIONS (2)
  - EXTRAVASATION [None]
  - INJECTION SITE REACTION [None]
